FAERS Safety Report 12942964 (Version 1)
Quarter: 2016Q4

REPORT INFORMATION
  Report Type: Spontaneous
  Country: NL (occurrence: NL)
  Receive Date: 20161115
  Receipt Date: 20161115
  Transmission Date: 20170207
  Serious: Yes (Other)
  Sender: FDA-Public Use
  Company Number: NL-SEBELA IRELAND LIMITED-2016SEB01507

PATIENT

DRUGS (1)
  1. HYDROCORTISONE. [Suspect]
     Active Substance: HYDROCORTISONE
     Indication: SECONDARY ADRENOCORTICAL INSUFFICIENCY
     Dosage: 0.2 TO 0.3 MG/KG/DAY, DIVIDED INTO 3 DOSES
     Route: 065

REACTIONS (1)
  - Influenza [Unknown]
